FAERS Safety Report 8103190-2 (Version None)
Quarter: 2012Q1

REPORT INFORMATION
  Report Type: 
  Country: None (occurrence: None)
  Receive Date: 20120201
  Receipt Date: 20120124
  Transmission Date: 20120608
  Serious: Yes (Other)
  Sender: FDA-Public Use
  Company Number: IE-TEVA-286799ISR

PATIENT
  Age: 31 Year
  Sex: Female
  Weight: 60.4 kg

DRUGS (3)
  1. HERBAL PREPARATION [Interacting]
     Indication: PRODUCT USED FOR UNKNOWN INDICATION
     Route: 065
     Dates: start: 20110101
  2. DOMPERIDONE [Interacting]
     Indication: PRODUCT USED FOR UNKNOWN INDICATION
     Route: 065
     Dates: start: 20110101
  3. LEVONORGESTREL [Suspect]
     Indication: POST COITAL CONTRACEPTION
     Route: 048
     Dates: start: 20110213, end: 20110213

REACTIONS (2)
  - DRUG INTERACTION [None]
  - PREGNANCY AFTER POST COITAL CONTRACEPTION [None]
